FAERS Safety Report 8766457 (Version 1)
Quarter: 2012Q4

REPORT INFORMATION
  Report Type: 
  Country: GB (occurrence: GB)
  Receive Date: 20120904
  Receipt Date: 20120904
  Transmission Date: 20130627
  Serious: Yes (Other)
  Sender: FDA-Public Use
  Company Number: GB-ROCHE-1004564

PATIENT
  Age: 70 Year
  Sex: Male
  Weight: 66.9 kg

DRUGS (5)
  1. MIRCERA [Suspect]
     Indication: ANAEMIA
     Route: 058
     Dates: start: 20110324, end: 20110524
  2. FUROSEMIDE [Concomitant]
     Indication: HYPERTENSION
     Route: 048
     Dates: start: 20110412
  3. RANITIDINE [Concomitant]
     Indication: DYSPEPSIA
     Route: 048
     Dates: start: 20100310
  4. SIROLIMUS [Concomitant]
     Indication: TRANSPLANT REJECTION
     Route: 048
     Dates: start: 20100310
  5. PREDNISOLONE [Concomitant]
     Indication: TRANSPLANT REJECTION
     Route: 048
     Dates: start: 20100223

REACTIONS (6)
  - Dizziness [Recovered/Resolved]
  - Vision blurred [Recovered/Resolved]
  - Nausea [Recovered/Resolved]
  - Rash [Recovered/Resolved]
  - Disorientation [Recovered/Resolved]
  - Balance disorder [Recovered/Resolved]
